FAERS Safety Report 5468014-0 (Version None)
Quarter: 2007Q3

REPORT INFORMATION
  Report Type: 
  Country: None (occurrence: None)
  Receive Date: 20070926
  Receipt Date: 20070921
  Transmission Date: 20080115
  Serious: Yes (Other)
  Sender: FDA-Public Use
  Company Number: US-ASTRAZENECA-2007UW22237

PATIENT
  Age: 80 Year
  Sex: Male
  Weight: 69.9 kg

DRUGS (4)
  1. CRESTOR [Suspect]
     Indication: BLOOD CHOLESTEROL INCREASED
     Route: 048
     Dates: start: 20070917
  2. COUMADIN [Concomitant]
  3. GLIPIZIDE [Concomitant]
  4. AMBIEN [Concomitant]

REACTIONS (2)
  - DIZZINESS [None]
  - VISION BLURRED [None]
